FAERS Safety Report 14553945 (Version 1)
Quarter: 2018Q1

REPORT INFORMATION
  Report Type: Spontaneous
  Country: US (occurrence: US)
  Receive Date: 20180220
  Receipt Date: 20180220
  Transmission Date: 20180509
  Serious: Yes (Hospitalization)
  Sender: FDA-Public Use
  Company Number: None

PATIENT
  Age: 71 Year
  Sex: Female
  Weight: 86.18 kg

DRUGS (6)
  1. GENERIC NEXIUM [Concomitant]
     Active Substance: ESOMEPRAZOLE MAGNESIUM
  2. VITAMIN E [Concomitant]
     Active Substance: .ALPHA.-TOCOPHEROL
  3. GENERIC KEPPRA [Concomitant]
     Active Substance: LEVETIRACETAM
  4. VITAMIN D [Concomitant]
     Active Substance: CHOLECALCIFEROL
  5. VITAMIN B [Concomitant]
     Active Substance: VITAMIN B
  6. PAROXETINE HCL [Suspect]
     Active Substance: PAROXETINE HYDROCHLORIDE
     Indication: DEPRESSION
     Dosage: DOSE - 1 OF EACH [40MG + 10MG TABLETS]
     Route: 048
     Dates: end: 2018

REACTIONS (3)
  - Depression [None]
  - Bedridden [None]
  - Anger [None]

NARRATIVE: CASE EVENT DATE: 20171222
